FAERS Safety Report 18527558 (Version 1)
Quarter: 2020Q4

REPORT INFORMATION
  Report Type: Spontaneous
  Country: CA (occurrence: CA)
  Receive Date: 20201120
  Receipt Date: 20201120
  Transmission Date: 20210114
  Serious: Yes (Other)
  Sender: FDA-Public Use
  Company Number: CA-SAMSUNG BIOEPIS-SB-2020-34400

PATIENT
  Age: 24 Year
  Sex: Male
  Weight: 86 kg

DRUGS (3)
  1. ENTOCORT [Concomitant]
     Active Substance: BUDESONIDE
     Indication: PRODUCT USED FOR UNKNOWN INDICATION
     Dosage: CAPSULE, SUSTAINED RELEASE
     Route: 065
  2. ESCITALOPRAM [Concomitant]
     Active Substance: ESCITALOPRAM OXALATE
     Indication: PRODUCT USED FOR UNKNOWN INDICATION
     Route: 048
  3. INFLIXIMAB [Suspect]
     Active Substance: INFLIXIMAB
     Indication: CROHN^S DISEASE
     Route: 042

REACTIONS (9)
  - Inappropriate schedule of product administration [Unknown]
  - Product use issue [Unknown]
  - Intestinal fistula [Unknown]
  - Muscle spasms [Unknown]
  - Enterocolonic fistula [Unknown]
  - Asthenia [Unknown]
  - Impaired quality of life [Unknown]
  - Off label use [Unknown]
  - Condition aggravated [Unknown]
